FAERS Safety Report 8275249-0 (Version None)
Quarter: 2012Q2

REPORT INFORMATION
  Report Type: 
  Country: None (occurrence: None)
  Receive Date: 20120411
  Receipt Date: 20120402
  Transmission Date: 20120825
  Serious: Yes (Other)
  Sender: FDA-Public Use
  Company Number: IT-ROCHE-1055574

PATIENT
  Sex: Female

DRUGS (4)
  1. METHOTREXATE [Concomitant]
     Route: 030
  2. INDERAL [Concomitant]
  3. ACTEMRA [Suspect]
     Indication: RHEUMATOID ARTHRITIS
     Route: 042
     Dates: start: 20040101, end: 20120305
  4. MEDROL [Concomitant]
     Route: 048

REACTIONS (3)
  - ERYTHEMA [None]
  - CHEST DISCOMFORT [None]
  - VERTIGO [None]
